FAERS Safety Report 5083312-0 (Version None)
Quarter: 2006Q3

REPORT INFORMATION
  Report Type: 
  Country: None (occurrence: None)
  Receive Date: 20060818
  Receipt Date: 20060810
  Transmission Date: 20061208
  Serious: Yes (Other)
  Sender: FDA-Public Use
  Company Number: US-JNJFOC-20060602364

PATIENT
  Sex: Female
  Weight: 95.26 kg

DRUGS (6)
  1. REMICADE [Suspect]
     Route: 042
  2. REMICADE [Suspect]
     Route: 042
  3. REMICADE [Suspect]
     Indication: PSORIATIC ARTHROPATHY
     Dosage: GREATER THAN 3 YEARS AGO
     Route: 042
  4. PAXIL [Concomitant]
  5. SEASONALE [Concomitant]
     Indication: CONTRACEPTION
  6. FLONASE [Concomitant]

REACTIONS (7)
  - BODY TEMPERATURE INCREASED [None]
  - DRUG EXPOSURE DURING PREGNANCY [None]
  - DYSPNOEA [None]
  - INFUSION RELATED REACTION [None]
  - PRURITUS [None]
  - SWOLLEN TONGUE [None]
  - THROAT TIGHTNESS [None]
